FAERS Safety Report 18633553 (Version 1)
Quarter: 2020Q4

REPORT INFORMATION
  Report Type: Spontaneous
  Country: DE (occurrence: DE)
  Receive Date: 20201218
  Receipt Date: 20201218
  Transmission Date: 20210114
  Serious: Yes (Other)
  Sender: FDA-Public Use
  Company Number: DE-PFIZER INC-2020497568

PATIENT
  Age: 40 Year
  Sex: Female
  Weight: 54 kg

DRUGS (2)
  1. CYTOTEC [Suspect]
     Active Substance: MISOPROSTOL
     Indication: ABORTION INDUCED
     Dosage: UNK
     Route: 048
     Dates: start: 20200113, end: 20200113
  2. MIFEGYNE [Concomitant]
     Active Substance: MIFEPRISTONE
     Indication: ABORTION INDUCED
     Dosage: ACCORDING TO PHYSICIAN^S PRESCRIPTION
     Route: 048
     Dates: start: 20200116, end: 20200116

REACTIONS (2)
  - Ischaemic stroke [Unknown]
  - Off label use [Unknown]

NARRATIVE: CASE EVENT DATE: 20200113
